FAERS Safety Report 13749316 (Version 2)
Quarter: 2017Q4

REPORT INFORMATION
  Report Type: Report from Study
  Country: CA (occurrence: CA)
  Receive Date: 20170713
  Receipt Date: 20171005
  Transmission Date: 20180320
  Serious: Yes (Other)
  Sender: FDA-Public Use
  Company Number: CA-GLAXOSMITHKLINE-CA2017GSK105282

PATIENT
  Age: 24 Year
  Sex: Male

DRUGS (5)
  1. COSENTYX [Suspect]
     Active Substance: SECUKINUMAB
     Indication: ANKYLOSING SPONDYLITIS
     Dosage: 300 MG, WE
     Route: 058
     Dates: start: 20170610
  2. COSENTYX [Suspect]
     Active Substance: SECUKINUMAB
     Dosage: 300 MG, QMO
     Route: 058
     Dates: start: 20170901, end: 201709
  3. DICLOFENAC SODIUM. [Suspect]
     Active Substance: DICLOFENAC SODIUM
     Indication: PRODUCT USED FOR UNKNOWN INDICATION
  4. COSENTYX [Suspect]
     Active Substance: SECUKINUMAB
     Dosage: 300 MG, WE
     Route: 058
     Dates: start: 20170701
  5. NAPROXEN. [Concomitant]
     Active Substance: NAPROXEN

REACTIONS (5)
  - Drug ineffective [Unknown]
  - Vision blurred [Unknown]
  - Dizziness [Unknown]
  - Uveitis [Unknown]
  - Eye pain [Unknown]

NARRATIVE: CASE EVENT DATE: 201706
